FAERS Safety Report 7943226-2 (Version None)
Quarter: 2011Q4

REPORT INFORMATION
  Report Type: 
  Country: None (occurrence: None)
  Receive Date: 20111128
  Receipt Date: 20111122
  Transmission Date: 20120403
  Serious: Yes (Other)
  Sender: FDA-Public Use
  Company Number: PHHY2011AR102610

PATIENT
  Age: 51 Year
  Sex: Female

DRUGS (3)
  1. PREDNISONE TAB [Concomitant]
     Dosage: 40 MG, QD
  2. CALCITONIN SALMON [Concomitant]
     Dosage: 200 IU/DAY
  3. PAMIDRONATE DISODIUM [Suspect]
     Dosage: 90 MG, UNK

REACTIONS (6)
  - BLOOD ALKALINE PHOSPHATASE INCREASED [None]
  - OSTEOMALACIA [None]
  - HIP FRACTURE [None]
  - NEOPLASM SKIN [None]
  - FRACTURE [None]
  - BLOOD PHOSPHORUS DECREASED [None]
